FAERS Safety Report 6641605-7 (Version None)
Quarter: 2010Q1

REPORT INFORMATION
  Report Type: 
  Country: None (occurrence: None)
  Receive Date: 20100317
  Receipt Date: 20100317
  Transmission Date: 20100710
  Serious: Yes (Hospitalization)
  Sender: FDA-Public Use
  Company Number: None

PATIENT
  Age: 59 Year
  Sex: Male
  Weight: 65 kg

DRUGS (7)
  1. EFAVIRENZ [Suspect]
     Indication: HIV INFECTION
     Dosage: 600 MG QD ORAL
     Route: 048
     Dates: start: 20090616, end: 20100301
  2. TRUVADA [Suspect]
     Indication: HIV INFECTION
     Dosage: 500 MG QD ORAL
     Route: 048
     Dates: start: 20090616, end: 20100301
  3. DIABINESE [Concomitant]
  4. METFORMIN (GLUCOPHAGE) [Concomitant]
  5. SEPTRIN [Concomitant]
  6. ENALAPRIL MALEATE [Concomitant]
  7. RIFAFOUR [Concomitant]

REACTIONS (6)
  - BLOOD UREA INCREASED [None]
  - CARDIAC FAILURE CONGESTIVE [None]
  - DIARRHOEA [None]
  - HAEMOPTYSIS [None]
  - ORAL CANDIDIASIS [None]
  - VIROLOGIC FAILURE [None]
